FAERS Safety Report 10457127 (Version 1)
Quarter: 2014Q3

REPORT INFORMATION
  Report Type: Report from Study
  Country: BR (occurrence: BR)
  Receive Date: 20140916
  Receipt Date: 20140916
  Transmission Date: 20150326
  Serious: Yes (Death, Other)
  Sender: FDA-Public Use
  Company Number: PHHY2014BR116623

PATIENT
  Sex: Male

DRUGS (3)
  1. VISKALDIX [Suspect]
     Active Substance: CLOPAMIDE\PINDOLOL
  2. METFORMIN [Suspect]
     Active Substance: METFORMIN HYDROCHLORIDE
     Indication: DIABETES MELLITUS
     Dosage: 850 MG, UNK
     Route: 048
     Dates: end: 20121012
  3. VYTORIN [Suspect]
     Active Substance: EZETIMIBE\SIMVASTATIN

REACTIONS (3)
  - Aortic aneurysm [Fatal]
  - Glaucoma [Unknown]
  - Cardiac disorder [Fatal]
